FAERS Safety Report 14093392 (Version 1)
Quarter: 2017Q4

REPORT INFORMATION
  Report Type: Spontaneous
  Country: FR (occurrence: FR)
  Receive Date: 20171016
  Receipt Date: 20171016
  Transmission Date: 20180321
  Serious: Yes (Hospitalization)
  Sender: FDA-Public Use
  Company Number: PHHY2017FR147552

PATIENT
  Age: 19 Year
  Sex: Female

DRUGS (2)
  1. RIAMET [Suspect]
     Active Substance: ARTEMETHER\LUMEFANTRINE
     Indication: LYME DISEASE
     Dosage: 2 DF, BID
     Route: 048
     Dates: start: 20170726, end: 20170816
  2. BACTRIM [Suspect]
     Active Substance: SULFAMETHOXAZOLE\TRIMETHOPRIM
     Indication: LYME DISEASE
     Dosage: 0.5 DF, BID
     Route: 048
     Dates: start: 20170726, end: 20170816

REACTIONS (1)
  - Photodermatosis [Recovering/Resolving]

NARRATIVE: CASE EVENT DATE: 20170821
